FAERS Safety Report 6668313-0 (Version None)
Quarter: 2010Q2

REPORT INFORMATION
  Report Type: 
  Country: None (occurrence: None)
  Receive Date: 20100406
  Receipt Date: 20100323
  Transmission Date: 20101027
  Serious: Yes (Hospitalization, Other)
  Sender: FDA-Public Use
  Company Number: US-TYCO HEALTHCARE/MALLINCKRODT-T200902372

PATIENT

DRUGS (13)
  1. OPTIMARK [Suspect]
     Indication: NUCLEAR MAGNETIC RESONANCE IMAGING
     Dosage: UNK
     Dates: start: 20060816, end: 20060816
  2. LANTUS [Concomitant]
     Indication: DIABETES MELLITUS INADEQUATE CONTROL
     Dosage: UNK, QD, HS
  3. PHOSLO [Concomitant]
     Dosage: 667 MG,  TWO TABLETS BID
  4. HYDRALAZINE HCL [Concomitant]
     Dosage: 25 MG, TID
  5. ISORBIDE [Concomitant]
     Dosage: UNK
  6. ASPIRIN [Concomitant]
     Indication: PROPHYLAXIS
     Dosage: 81 MG, QD
  7. EPOGEN [Concomitant]
     Indication: ANAEMIA
     Dosage: UNK
  8. IRON [Concomitant]
     Indication: ANAEMIA
     Dosage: UNK
  9. LASIX [Concomitant]
     Indication: FLUID RETENTION
     Dosage: UNK
  10. PRANDIN                            /00882701/ [Concomitant]
     Dosage: UNK
  11. COREG [Concomitant]
     Indication: CARDIAC FAILURE CONGESTIVE
     Dosage: UNK
  12. ZETIA [Concomitant]
     Dosage: UNK
  13. NOVOLIN 70/30 [Concomitant]
     Dosage: UNK

REACTIONS (8)
  - BURNS THIRD DEGREE [None]
  - MYALGIA [None]
  - NEPHROGENIC SYSTEMIC FIBROSIS [None]
  - OFF LABEL USE [None]
  - PERIPHERAL ARTERIAL OCCLUSIVE DISEASE [None]
  - PHARYNGITIS [None]
  - UVULITIS [None]
  - WOUND [None]
